FAERS Safety Report 6529775-2 (Version None)
Quarter: 2010Q1

REPORT INFORMATION
  Report Type: 
  Country: None (occurrence: None)
  Receive Date: 20100107
  Receipt Date: 20100105
  Transmission Date: 20100710
  Serious: Yes (Hospitalization)
  Sender: FDA-Public Use
  Company Number: US-BRISTOL-MYERS SQUIBB COMPANY-14921274

PATIENT
  Age: 72 Year
  Sex: Female
  Weight: 72 kg

DRUGS (2)
  1. ERBITUX [Suspect]
     Indication: GASTRIC CANCER
     Dosage: 250MG/M2 OVER 60-120 MIN WEEKLY
     Route: 042
     Dates: start: 20090902, end: 20091116
  2. TARCEVA [Suspect]
     Indication: GASTRIC CANCER
     Dosage: 25 MG QD ON DAYS 8-21 OF CYCLE 1;THEN ON DAYS 1-21 OF ALL SUBSEQUENT CYCLES
     Route: 048
     Dates: start: 20090902, end: 20091116

REACTIONS (3)
  - HYPOGLYCAEMIA [None]
  - HYPOKALAEMIA [None]
  - HYPOMAGNESAEMIA [None]
